FAERS Safety Report 25320778 (Version 3)
Quarter: 2025Q2

REPORT INFORMATION
  Report Type: Spontaneous
  Country: US (occurrence: US)
  Receive Date: 20250515
  Receipt Date: 20250623
  Transmission Date: 20250716
  Serious: No
  Sender: SANOFI AVENTIS
  Company Number: US-SA-2025SA136290

PATIENT
  Age: 62 Year
  Sex: Female
  Weight: 95.91 kg

DRUGS (23)
  1. DUPIXENT [Suspect]
     Active Substance: DUPILUMAB
     Indication: Asthma
     Dosage: 300 MG, QOW
     Route: 058
     Dates: start: 20250409, end: 2025
  2. LEVOTHYROXINE [Concomitant]
     Active Substance: LEVOTHYROXINE
     Dosage: 100 UG, QD
     Route: 048
  3. ZYRTEC [Concomitant]
     Active Substance: CETIRIZINE HYDROCHLORIDE
     Dosage: 1 DF, Q12H
  4. FLONASE [Concomitant]
     Active Substance: FLUTICASONE PROPIONATE
     Dosage: 1 DF, QD
  5. XALATAN [Concomitant]
     Active Substance: LATANOPROST
  6. DELTASONE [Concomitant]
     Active Substance: PREDNISONE
     Dosage: 20 MG, QD
  7. DELTASONE [Concomitant]
     Active Substance: PREDNISONE
     Dosage: 10 MG, QD
     Dates: start: 20250318
  8. OMEPRAZOLE [Concomitant]
     Active Substance: OMEPRAZOLE
     Route: 048
  9. BACILLUS COAGULANS [Concomitant]
     Active Substance: BACILLUS COAGULANS
     Dosage: 1 DF, Q12H
  10. ASTELIN [Concomitant]
     Active Substance: AZELASTINE HYDROCHLORIDE
     Dosage: NSTILL 2 SPRAYS BY NASAL ROUTE IN THE MORNING AND 2 SPRAYS BEFORE BEDTIME. USE IN EACH NOSTRIL AS DI
  11. SINGULAIR [Concomitant]
     Active Substance: MONTELUKAST SODIUM
     Dosage: 10 MG, QD
  12. VITAMIN B12 [Concomitant]
     Active Substance: CYANOCOBALAMIN
  13. NIACIN [Concomitant]
     Active Substance: NIACIN
  14. VITAMIN C [Concomitant]
     Active Substance: ASCORBIC ACID
  15. WIXELA INHUB [Concomitant]
     Active Substance: FLUTICASONE PROPIONATE\SALMETEROL XINAFOATE
     Dosage: 1 DF, Q12H
  16. VITAMIN B12 [Concomitant]
     Active Substance: CYANOCOBALAMIN
  17. DEVICE [Concomitant]
     Active Substance: DEVICE
     Route: 014
  18. VITAMIN D3 [Concomitant]
     Active Substance: CHOLECALCIFEROL
     Dosage: 1 DF, QD
     Route: 048
  19. VENTOLIN HFA [Concomitant]
     Active Substance: ALBUTEROL SULFATE
  20. PEPCID [Concomitant]
     Active Substance: FAMOTIDINE
     Dosage: 1 DF, BID
  21. SODIUM CHLORIDE [Concomitant]
     Active Substance: SODIUM CHLORIDE
     Dosage: 4 ML, BID
  22. TESSALON [Concomitant]
     Active Substance: BENZONATATE
     Route: 048
  23. MONTELUKAST SODIUM [Concomitant]
     Active Substance: MONTELUKAST SODIUM

REACTIONS (5)
  - Peripheral swelling [Unknown]
  - Nail discolouration [Unknown]
  - Pyrexia [Recovering/Resolving]
  - Rash macular [Unknown]
  - Rash [Unknown]

NARRATIVE: CASE EVENT DATE: 20250429
